FAERS Safety Report 6646150-0 (Version None)
Quarter: 2010Q1

REPORT INFORMATION
  Report Type: 
  Country: None (occurrence: None)
  Receive Date: 20100323
  Receipt Date: 20100311
  Transmission Date: 20100710
  Serious: Yes (Other)
  Sender: FDA-Public Use
  Company Number: US-AMGEN-KDC399172

PATIENT
  Sex: Female
  Weight: 52.2 kg

DRUGS (6)
  1. ENBREL [Suspect]
     Indication: RHEUMATOID ARTHRITIS
     Dates: start: 20090126, end: 20090401
  2. VITAMIN TAB [Concomitant]
     Route: 048
     Dates: start: 20090218, end: 20091015
  3. PREDNISONE [Concomitant]
     Route: 048
     Dates: start: 20090220, end: 20091015
  4. TYLENOL-500 [Concomitant]
     Route: 048
     Dates: start: 20090220, end: 20090310
  5. VITAMIN B-12 [Concomitant]
     Dates: start: 20090801, end: 20091015
  6. IRON [Concomitant]
     Route: 048
     Dates: start: 20090701, end: 20091015

REACTIONS (1)
  - PREMATURE LABOUR [None]
